FAERS Safety Report 4396979-7 (Version None)
Quarter: 2004Q3

REPORT INFORMATION
  Report Type: 
  Country: None (occurrence: None)
  Receive Date: 20040714
  Receipt Date: 20040707
  Transmission Date: 20050211
  Serious: Yes (Death)
  Sender: FDA-Public Use
  Company Number: PHBS2004BR09122

PATIENT
  Age: 37 Year
  Sex: Female
  Weight: 150 kg

DRUGS (4)
  1. MELLARIL [Suspect]
     Indication: BIPOLAR I DISORDER
     Dosage: 100 MG/D
     Route: 048
  2. TEGRETOL [Suspect]
     Indication: BIPOLAR DISORDER
     Dosage: MAXIMUM DOSE
     Route: 065
  3. RIVOTRIL [Concomitant]
     Route: 065
  4. LITHIUM [Concomitant]
     Route: 065

REACTIONS (1)
  - VASCULAR RUPTURE [None]
